FAERS Safety Report 8015763-6 (Version None)
Quarter: 2011Q4

REPORT INFORMATION
  Report Type: 
  Country: None (occurrence: None)
  Receive Date: 20111230
  Receipt Date: 20111222
  Transmission Date: 20120403
  Serious: Yes (Other)
  Sender: FDA-Public Use
  Company Number: US-ABBOTT-11P-163-0886052-00

PATIENT
  Sex: Male
  Weight: 81.72 kg

DRUGS (10)
  1. HUMIRA [Suspect]
     Indication: CROHN'S DISEASE
  2. HUMIRA [Suspect]
  3. OXYCODONE HCL [Concomitant]
     Indication: BACK DISORDER
  4. SOMA [Concomitant]
     Indication: BACK DISORDER
  5. ZAFIRLUKAST [Concomitant]
     Indication: SINUS DISORDER
  6. HUMIRA [Suspect]
     Indication: ANKYLOSING SPONDYLITIS
     Route: 058
     Dates: start: 20090101
  7. OXYCODONE HCL [Concomitant]
     Indication: ARTHRALGIA
  8. OMEPRAZOLE [Concomitant]
     Indication: GASTROOESOPHAGEAL REFLUX DISEASE
  9. AMBIEN [Concomitant]
     Indication: INSOMNIA
  10. KLONOPIN [Concomitant]
     Indication: RESTLESS LEGS SYNDROME

REACTIONS (1)
  - FISTULA [None]
